FAERS Safety Report 9514406 (Version 3)
Quarter: 2014Q2

REPORT INFORMATION
  Report Type: Spontaneous
  Country: US (occurrence: US)
  Receive Date: 20130911
  Receipt Date: 20140501
  Transmission Date: 20141212
  Serious: Yes (Other)
  Sender: FDA-Public Use
  Company Number: US-BIOGENIDEC-2013BI071521

PATIENT
  Sex: Female

DRUGS (3)
  1. TYSABRI [Suspect]
     Indication: MULTIPLE SCLEROSIS
     Route: 042
     Dates: start: 20080731, end: 20130619
  2. RITALIN [Concomitant]
  3. TAMAZEPAM [Concomitant]

REACTIONS (2)
  - Fatigue [Unknown]
  - Congenital uterine anomaly [Unknown]
